FAERS Safety Report 23028157 (Version 1)
Quarter: 2023Q4

REPORT INFORMATION
  Report Type: Spontaneous
  Country: US (occurrence: US)
  Receive Date: 20231004
  Receipt Date: 20231004
  Transmission Date: 20240110
  Serious: Yes (Other)
  Sender: FDA-Public Use
  Company Number: US-BRISTOL-MYERS SQUIBB COMPANY-2023-138446

PATIENT
  Age: 27 Year
  Sex: Female

DRUGS (5)
  1. DASATINIB [Suspect]
     Active Substance: DASATINIB
     Indication: Chronic myeloid leukaemia
     Dates: start: 2016
  2. DASATINIB [Suspect]
     Active Substance: DASATINIB
     Dates: start: 2018
  3. DASATINIB [Suspect]
     Active Substance: DASATINIB
     Dates: start: 201907, end: 202003
  4. DASATINIB [Suspect]
     Active Substance: DASATINIB
  5. DASATINIB [Suspect]
     Active Substance: DASATINIB

REACTIONS (1)
  - Pancytopenia [Unknown]
